FAERS Safety Report 5584703-1 (Version None)
Quarter: 2008Q1

REPORT INFORMATION
  Report Type: 
  Country: None (occurrence: None)
  Receive Date: 20080108
  Receipt Date: 20080102
  Transmission Date: 20080703
  Serious: Yes (Death, Other)
  Sender: FDA-Public Use
  Company Number: DE-PFIZER INC-2008000465

PATIENT
  Age: 62 Year
  Sex: Male

DRUGS (7)
  1. IRINOTECAN HCL [Suspect]
     Route: 042
  2. IRINOTECAN HCL [Suspect]
     Route: 042
  3. FLUOROURACIL [Suspect]
     Route: 042
     Dates: start: 20030801
  4. FLUOROURACIL [Suspect]
  5. FOLINIC ACID [Suspect]
     Route: 042
  6. FOLINIC ACID [Suspect]
  7. BEVACIZUMAB [Suspect]
     Route: 042

REACTIONS (2)
  - DIARRHOEA [None]
  - TUMOUR LYSIS SYNDROME [None]
